FAERS Safety Report 15145548 (Version 1)
Quarter: 2018Q3

REPORT INFORMATION
  Report Type: Spontaneous
  Country: KE (occurrence: KE)
  Receive Date: 20180713
  Receipt Date: 20180713
  Transmission Date: 20181010
  Serious: Yes (Other)
  Sender: FDA-Public Use
  Company Number: KE-ALLERGAN-1835156US

PATIENT
  Age: 34 Year
  Sex: Male

DRUGS (4)
  1. MORPHINE SULFATE UNK [Suspect]
     Active Substance: MORPHINE SULFATE
     Indication: PROCTALGIA
     Dosage: 30 MG, Q4HR
     Route: 048
  2. PARACETAMOL [Suspect]
     Active Substance: ACETAMINOPHEN
     Indication: PROCTALGIA
     Dosage: 500 MG, Q6HR
     Route: 048
  3. MELOXICAM. [Suspect]
     Active Substance: MELOXICAM
     Indication: PROCTALGIA
     Dosage: 15 MG, QD
     Route: 048
  4. MORPHINE SULFATE UNK [Suspect]
     Active Substance: MORPHINE SULFATE
     Dosage: 20 MG, Q4HR
     Route: 048

REACTIONS (3)
  - Proctalgia [Recovering/Resolving]
  - Rectal haemorrhage [Unknown]
  - Drug ineffective [Unknown]
